FAERS Safety Report 4674992-X (Version None)
Quarter: 2005Q2

REPORT INFORMATION
  Report Type: 
  Country: None (occurrence: None)
  Receive Date: 20050525
  Receipt Date: 20050509
  Transmission Date: 20051028
  Serious: No
  Sender: FDA-Public Use
  Company Number: B0381068A

PATIENT
  Age: 63 Year
  Sex: Male

DRUGS (4)
  1. LAMICTAL [Suspect]
     Indication: BIPOLAR I DISORDER
  2. CARBAMAZEPINE [Suspect]
     Dosage: SEE DOSAGE TEXT
  3. NEFAZODONE HCL [Concomitant]
  4. CLONAZEPAM [Concomitant]

REACTIONS (7)
  - BALANCE DISORDER [None]
  - DIZZINESS [None]
  - DRUG INTERACTION [None]
  - DRUG LEVEL INCREASED [None]
  - INCORRECT DRUG ADMINISTRATION DURATION [None]
  - RASH [None]
  - SEDATION [None]
